FAERS Safety Report 7879023-6 (Version None)
Quarter: 2011Q4

REPORT INFORMATION
  Report Type: 
  Country: None (occurrence: None)
  Receive Date: 20111101
  Receipt Date: 20111024
  Transmission Date: 20120403
  Serious: Yes (Hospitalization, Other)
  Sender: FDA-Public Use
  Company Number: PHEH2010US03418

PATIENT
  Sex: Female
  Weight: 70.5 kg

DRUGS (51)
  1. PREVACID [Concomitant]
     Dosage: 30 MG,
  2. REGLAN [Concomitant]
  3. CYTOXAN [Concomitant]
     Dates: start: 20020101, end: 20020601
  4. FASLODEX [Concomitant]
     Dates: start: 20030219
  5. DESOXYN [Concomitant]
  6. VIOXX [Concomitant]
  7. VYTORIN [Concomitant]
     Dosage: 20 MG, QD
  8. DRYSOL [Concomitant]
  9. NALTREXONE HYDROCHLORIDE [Concomitant]
  10. GLUTAMINE [Concomitant]
  11. VITAMIN E [Concomitant]
  12. CELEBREX [Concomitant]
  13. NEXIUM [Concomitant]
  14. CLARINEX [Concomitant]
  15. PROTONIX [Concomitant]
  16. WELLBUTRIN XL [Concomitant]
  17. GABAPENTIN [Concomitant]
  18. DURAGESIC-100 [Concomitant]
  19. FLUOXETINE HCL [Concomitant]
     Dosage: 20 MG,
  20. BIOTIN [Concomitant]
  21. SIMVASTATIN [Concomitant]
     Dosage: 20 MG,
  22. FEMARA [Concomitant]
  23. DOXAZOSIN MESYLATE [Concomitant]
  24. COQ10 [Concomitant]
  25. TAMOXIFEN CITRATE [Concomitant]
  26. SULFASALAZINE [Concomitant]
  27. CELEXA [Concomitant]
  28. ADRIAMYCIN PFS [Concomitant]
     Dates: start: 20020101, end: 20020601
  29. LEVOFLOXACIN [Concomitant]
  30. AMBIEN [Concomitant]
  31. SELENIUM [Concomitant]
  32. CALCIUM [Concomitant]
  33. MAGNESIUM [Concomitant]
  34. AUGMENTIN [Concomitant]
  35. LAC-HYDRIN [Concomitant]
  36. TAGAMET [Concomitant]
  37. AREDIA [Suspect]
  38. ADDERALL 5 [Concomitant]
     Dosage: 15 MG,
  39. PROZAC [Concomitant]
  40. FLUOROURACIL [Concomitant]
  41. EMLA [Concomitant]
  42. ZOMETA [Suspect]
     Dates: start: 20051001
  43. VITAMIN D [Concomitant]
  44. VITAMIN B-12 [Concomitant]
  45. XELODA [Concomitant]
  46. TYLENOL-500 [Concomitant]
  47. ZOMETA [Suspect]
     Indication: METASTASES TO BONE
     Route: 042
  48. WARFARIN SODIUM [Concomitant]
     Dosage: 2 MG,
  49. CYMBALTA [Concomitant]
     Dosage: 60 MG, BID
  50. PRILOSEC [Concomitant]
  51. NASONEX [Concomitant]

REACTIONS (100)
  - GASTROOESOPHAGEAL REFLUX DISEASE [None]
  - LYMPHOEDEMA [None]
  - DYSPEPSIA [None]
  - ABDOMINAL PAIN UPPER [None]
  - INTERVERTEBRAL DISC PROTRUSION [None]
  - HEPATITIS [None]
  - OSTEOCHONDROSIS [None]
  - VAGINAL DISCHARGE [None]
  - DENTAL CARIES [None]
  - NEURODERMATITIS [None]
  - CHOLESTEATOMA [None]
  - AMNESIA [None]
  - ASTHENIA [None]
  - VISUAL IMPAIRMENT [None]
  - INJURY [None]
  - ANXIETY [None]
  - ANAEMIA [None]
  - HIATUS HERNIA [None]
  - CONSTIPATION [None]
  - ABDOMINAL DISCOMFORT [None]
  - NASAL SEPTUM DEVIATION [None]
  - TONGUE DISCOLOURATION [None]
  - OSTEOPENIA [None]
  - DYSPHAGIA [None]
  - FLUID RETENTION [None]
  - RECTAL POLYP [None]
  - KERATITIS [None]
  - PAPILLOMA [None]
  - SPLENIC LESION [None]
  - ABDOMINAL DISTENSION [None]
  - HYPERLIPIDAEMIA [None]
  - EAR PAIN [None]
  - HAEMORRHOIDS [None]
  - FATIGUE [None]
  - PARONYCHIA [None]
  - DEAFNESS NEUROSENSORY [None]
  - ACTINIC KERATOSIS [None]
  - RASH [None]
  - OSTEONECROSIS OF JAW [None]
  - SPONDYLOLYSIS [None]
  - SINUSITIS [None]
  - NASAL CONGESTION [None]
  - SCOLIOSIS [None]
  - SPONDYLOLISTHESIS [None]
  - GASTRITIS [None]
  - NECK PAIN [None]
  - MUSCULAR WEAKNESS [None]
  - CONTUSION [None]
  - DYSAESTHESIA [None]
  - PRURITUS [None]
  - NEURITIS [None]
  - DEEP VEIN THROMBOSIS [None]
  - BONE LESION [None]
  - GASTRIC POLYPS [None]
  - ADNEXA UTERI MASS [None]
  - NEOPLASM MALIGNANT [None]
  - ATELECTASIS [None]
  - ARTHROPATHY [None]
  - SYNOVIAL CYST [None]
  - ANIMAL BITE [None]
  - ANHEDONIA [None]
  - OSTEOARTHRITIS [None]
  - HEPATIC CYST [None]
  - VIRAL INFECTION [None]
  - DEPRESSION [None]
  - HAEMATOCHEZIA [None]
  - RECTAL HAEMORRHAGE [None]
  - DIVERTICULUM [None]
  - NAUSEA [None]
  - SENSITIVITY OF TEETH [None]
  - DERMATITIS [None]
  - TINNITUS [None]
  - PAIN [None]
  - PULMONARY EMBOLISM [None]
  - ARTERIOSCLEROSIS [None]
  - VOMITING [None]
  - SPINAL OSTEOARTHRITIS [None]
  - DIARRHOEA [None]
  - NEOPLASM PROGRESSION [None]
  - CHEST PAIN [None]
  - CERVICAL SPINAL STENOSIS [None]
  - FALL [None]
  - PHLEBITIS [None]
  - OSTEOPOROSIS [None]
  - FIBROMYALGIA [None]
  - BONE PAIN [None]
  - FRACTURED SACRUM [None]
  - BACK PAIN [None]
  - HEPATIC MASS [None]
  - HEPATIC LESION [None]
  - OESOPHAGITIS [None]
  - WEIGHT INCREASED [None]
  - HYPERCHOLESTEROLAEMIA [None]
  - VERTEBRAL FORAMINAL STENOSIS [None]
  - HEADACHE [None]
  - BENIGN OVARIAN TUMOUR [None]
  - PLEURAL FIBROSIS [None]
  - ACNE [None]
  - VULVOVAGINITIS [None]
  - RENAL FAILURE CHRONIC [None]
